FAERS Safety Report 9985882 (Version 7)
Quarter: 2015Q4

REPORT INFORMATION
  Report Type: Spontaneous
  Country: US (occurrence: US)
  Receive Date: 20140307
  Receipt Date: 20151026
  Transmission Date: 20160305
  Serious: Yes (Hospitalization, Other)
  Sender: FDA-Public Use
  Company Number: US-009507513-1403USA000676

PATIENT
  Sex: Female

DRUGS (3)
  1. BONIVA [Suspect]
     Active Substance: IBANDRONATE SODIUM
     Indication: OSTEOPOROSIS
     Dosage: UNK, QM
     Route: 048
     Dates: start: 201008
  2. FOSAMAX [Suspect]
     Active Substance: ALENDRONATE SODIUM
     Indication: OSTEOPOROSIS
     Dosage: 70 MG, QW
     Route: 048
     Dates: start: 200111, end: 200802
  3. ALENDRONATE SODIUM. [Suspect]
     Active Substance: ALENDRONATE SODIUM
     Indication: OSTEOPOROSIS
     Dosage: 70 MG, QW
     Route: 048
     Dates: start: 20080316, end: 201007

REACTIONS (24)
  - Mastoidectomy [Unknown]
  - Scoliosis [Unknown]
  - Osteoarthritis [Unknown]
  - Herpes zoster [Unknown]
  - Chronic obstructive pulmonary disease [Not Recovered/Not Resolved]
  - Appendicectomy [Unknown]
  - Asthma [Unknown]
  - Immunodeficiency [Unknown]
  - Tooth extraction [Unknown]
  - Spinal osteoarthritis [Unknown]
  - Anxiety [Not Recovered/Not Resolved]
  - Gingival disorder [Unknown]
  - Adenotonsillectomy [Unknown]
  - Intestinal resection [Unknown]
  - Spondylolisthesis [Unknown]
  - Femur fracture [Recovering/Resolving]
  - Bursa disorder [Unknown]
  - Intramedullary rod insertion [Unknown]
  - Cataract operation [Unknown]
  - Drug intolerance [Unknown]
  - Pleurisy [Unknown]
  - Osteopenia [Unknown]
  - Psoriasis [Unknown]
  - Impaired healing [Unknown]

NARRATIVE: CASE EVENT DATE: 2003
